FAERS Safety Report 5713222-4 (Version None)
Quarter: 2008Q2

REPORT INFORMATION
  Report Type: 
  Country: None (occurrence: None)
  Receive Date: 20080422
  Receipt Date: 19971013
  Transmission Date: 20081010
  Serious: Yes (Death, Hospitalization)
  Sender: FDA-Public Use
  Company Number: DE-ROCHE-88239

PATIENT
  Age: 83 Year
  Sex: Male
  Weight: 64 kg

DRUGS (3)
  1. CEFTRIAXONE SODIUM [Suspect]
     Indication: SEPSIS
     Route: 042
     Dates: start: 19970721, end: 19970731
  2. ERYTROMYCIN [Concomitant]
     Route: 042
     Dates: start: 19970724, end: 19970731
  3. CARDIAC MEDICATION [Concomitant]
     Dates: end: 19970721

REACTIONS (2)
  - ABDOMINAL PAIN [None]
  - DEATH [None]
